FAERS Safety Report 19442789 (Version 2)
Quarter: 2021Q4

REPORT INFORMATION
  Report Type: Other
  Country: US (occurrence: US)
  Receive Date: 20210621
  Receipt Date: 20211221
  Transmission Date: 20220304
  Serious: No
  Sender: FDA-Public Use
  Company Number: US-ACORDA-ACO_169278_2021

PATIENT
  Age: 66 Year
  Sex: Female

DRUGS (9)
  1. INBRIJA [Suspect]
     Active Substance: LEVODOPA
     Indication: Parkinson^s disease
     Dosage: 84 MILLIGRAM, PRN (2 CAPSULES OF 42MG AS NEEDED) NOT TO EXCEED 5 DOSES A DAY
     Dates: start: 20201009
  2. INBRIJA [Suspect]
     Active Substance: LEVODOPA
     Indication: On and off phenomenon
     Dosage: 2 DOSAGE FORM, PRN; NOT TO EXCEED 5 DOSES A DAY
  3. INBRIJA [Suspect]
     Active Substance: LEVODOPA
     Indication: Musculoskeletal stiffness
  4. LEVOTHYROXINE [Concomitant]
     Active Substance: LEVOTHYROXINE
     Indication: Product used for unknown indication
     Dosage: UNK
     Route: 065
  5. LIOTHYRONINE [Concomitant]
     Active Substance: LIOTHYRONINE
     Indication: Product used for unknown indication
     Dosage: UNK
     Route: 065
  6. LORAZEPAM [Concomitant]
     Active Substance: LORAZEPAM
     Indication: Product used for unknown indication
     Dosage: UNK
     Route: 065
  7. RASAGILINE [Concomitant]
     Active Substance: RASAGILINE
     Indication: Product used for unknown indication
     Dosage: UNK
     Route: 065
  8. RYTARY [Concomitant]
     Active Substance: CARBIDOPA\LEVODOPA
     Indication: Product used for unknown indication
     Dosage: UNK
     Route: 065
  9. CARBIDOPA\LEVODOPA [Concomitant]
     Active Substance: CARBIDOPA\LEVODOPA
     Indication: Product used for unknown indication
     Dosage: 25/100 MG; 3 TABLETS 3 TIMES A DAY
     Route: 065

REACTIONS (7)
  - Condition aggravated [Unknown]
  - Incorrect route of product administration [Unknown]
  - Muscle spasms [Not Recovered/Not Resolved]
  - Bruxism [Not Recovered/Not Resolved]
  - Drug ineffective [Unknown]
  - Dyskinesia [Unknown]
  - Cough [Unknown]

NARRATIVE: CASE EVENT DATE: 20211129
